FAERS Safety Report 7576178-8 (Version None)
Quarter: 2011Q2

REPORT INFORMATION
  Report Type: 
  Country: None (occurrence: None)
  Receive Date: 20110623
  Receipt Date: 20110623
  Transmission Date: 20111010
  Serious: Yes (Hospitalization)
  Sender: FDA-Public Use
  Company Number: None

PATIENT
  Sex: Male
  Weight: 90.1 kg

DRUGS (3)
  1. ERBITUX [Suspect]
     Dosage: 3904 MG
  2. CISPLATIN [Suspect]
     Dosage: 480 MG
  3. TAXOL [Suspect]
     Dosage: 1536 MG

REACTIONS (8)
  - HYPOTENSION [None]
  - SEPSIS [None]
  - DIZZINESS [None]
  - ASPIRATION [None]
  - HYPOXIA [None]
  - MUSCULAR WEAKNESS [None]
  - DEHYDRATION [None]
  - DECREASED APPETITE [None]
